FAERS Safety Report 15095454 (Version 2)
Quarter: 2018Q3

REPORT INFORMATION
  Report Type: Spontaneous
  Country: GB (occurrence: GB)
  Receive Date: 20180702
  Receipt Date: 20180810
  Transmission Date: 20181010
  Serious: Yes (Other)
  Sender: FDA-Public Use
  Company Number: GB-ABBVIE-18P-167-2404443-00

PATIENT
  Sex: Female

DRUGS (6)
  1. RALTEGRAVIR POTASSIUM [Suspect]
     Active Substance: RALTEGRAVIR POTASSIUM
     Indication: MATERNAL EXPOSURE TIMING UNSPECIFIED
     Route: 064
  2. EMTRICITABINE / TENOFOVIR DISOPROXIL FUMARATE [Suspect]
     Active Substance: EMTRICITABINE\TENOFOVIR DISOPROXIL FUMARATE
     Indication: MATERNAL EXPOSURE TIMING UNSPECIFIED
     Route: 064
  3. LAMIVUDINE AND ZIDOVUDINE [Suspect]
     Active Substance: LAMIVUDINE\ZIDOVUDINE
     Indication: MATERNAL EXPOSURE TIMING UNSPECIFIED
     Route: 064
  4. DARUNAVIR [Suspect]
     Active Substance: DARUNAVIR
     Indication: MATERNAL EXPOSURE TIMING UNSPECIFIED
     Route: 064
  5. NEVIRAPINE. [Suspect]
     Active Substance: NEVIRAPINE
     Indication: MATERNAL EXPOSURE TIMING UNSPECIFIED
     Route: 064
  6. RITONAVIR. [Suspect]
     Active Substance: RITONAVIR
     Indication: MATERNAL EXPOSURE TIMING UNSPECIFIED
     Route: 064

REACTIONS (3)
  - Low birth weight baby [Unknown]
  - Foetal exposure during pregnancy [Unknown]
  - Premature baby [Unknown]

NARRATIVE: CASE EVENT DATE: 20140105
